FAERS Safety Report 6569602-0 (Version None)
Quarter: 2010Q1

REPORT INFORMATION
  Report Type: 
  Country: None (occurrence: None)
  Receive Date: 20100203
  Receipt Date: 20100203
  Transmission Date: 20100710
  Serious: Yes (Other)
  Sender: FDA-Public Use
  Company Number: None

PATIENT
  Sex: Female
  Weight: 62.5964 kg

DRUGS (3)
  1. PHILOSOPHY THE MIRACLE WORKER PHILOSOPY SKINCARE [Suspect]
     Indication: SKIN DISCOLOURATION
     Dosage: ONE PAD DAILY TOP
     Route: 061
     Dates: start: 20100122, end: 20100129
  2. PHILOSOPHY THE MIRACLE WORKER PHILOSOPY SKINCARE [Suspect]
     Indication: SKIN DISORDER
     Dosage: ONE PAD DAILY TOP
     Route: 061
     Dates: start: 20100122, end: 20100129
  3. PHILOSOPHY THE MIRACLE WORKER PHILOSOPY SKINCARE [Suspect]
     Indication: SKIN WRINKLING
     Dosage: ONE PAD DAILY TOP
     Route: 061
     Dates: start: 20100122, end: 20100129

REACTIONS (7)
  - DECREASED APPETITE [None]
  - FATIGUE [None]
  - GASTROINTESTINAL PAIN [None]
  - HEADACHE [None]
  - MYALGIA [None]
  - TINNITUS [None]
  - VITAMIN A INCREASED [None]
